FAERS Safety Report 10696452 (Version 1)
Quarter: 2015Q1

REPORT INFORMATION
  Report Type: Spontaneous
  Country: US (occurrence: US)
  Receive Date: 20150107
  Receipt Date: 20150107
  Transmission Date: 20150721
  Serious: No
  Sender: FDA-Public Use
  Company Number: US-GLAXOSMITHKLINE-US2014GSK021610

PATIENT
  Age: 72 Year
  Sex: Male
  Weight: 86.17 kg

DRUGS (3)
  1. VOTRIENT [Suspect]
     Active Substance: PAZOPANIB HYDROCHLORIDE
     Indication: ADRENAL GLAND CANCER
     Dosage: 800 MG, QD
     Route: 048
     Dates: start: 20140418
  2. ARTHRITIS MEDICATION [Concomitant]
  3. BLOOD PRESSURE MED [Concomitant]

REACTIONS (3)
  - Ageusia [Recovering/Resolving]
  - Weight decreased [Recovering/Resolving]
  - Decreased appetite [Recovering/Resolving]

NARRATIVE: CASE EVENT DATE: 201405
